FAERS Safety Report 6922610-X (Version None)
Quarter: 2010Q3

REPORT INFORMATION
  Report Type: 
  Country: None (occurrence: None)
  Receive Date: 20100813
  Receipt Date: 20100730
  Transmission Date: 20110219
  Serious: Yes (Hospitalization)
  Sender: FDA-Public Use
  Company Number: PHHY2010GB21837

PATIENT
  Sex: Male

DRUGS (3)
  1. CLOZARIL [Suspect]
     Indication: SCHIZOPHRENIA
     Dosage: 125 MG MANE, 275 MGNOCTE
     Dates: start: 19980108
  2. CLOZARIL [Suspect]
     Dosage: 125 MG, BID
     Route: 048
  3. CLOZARIL [Suspect]
     Dosage: 125 MG MANE, 275 MG NOCTE
     Route: 048

REACTIONS (7)
  - BACK PAIN [None]
  - FALL [None]
  - JOINT DISLOCATION [None]
  - MEDICATION ERROR [None]
  - NEOPLASM MALIGNANT [None]
  - PLATELET COUNT INCREASED [None]
  - RED BLOOD CELL SEDIMENTATION RATE INCREASED [None]
